FAERS Safety Report 18838540 (Version 1)
Quarter: 2021Q1

REPORT INFORMATION
  Report Type: Spontaneous
  Country: TJ (occurrence: TJ)
  Receive Date: 20210203
  Receipt Date: 20210203
  Transmission Date: 20210419
  Serious: Yes (Other)
  Sender: FDA-Public Use
  Company Number: TJ-JNJFOC-20210143783

PATIENT
  Age: 15 Year
  Sex: Female
  Weight: 52 kg

DRUGS (4)
  1. BEDAQUILINE [Suspect]
     Active Substance: BEDAQUILINE
     Indication: TUBERCULOSIS
     Route: 048
     Dates: start: 20200417
  2. LINEZOLID. [Suspect]
     Active Substance: LINEZOLID
     Indication: TUBERCULOSIS
     Route: 065
     Dates: start: 20200417
  3. CYCLOSERINE. [Suspect]
     Active Substance: CYCLOSERINE
     Indication: TUBERCULOSIS
     Route: 065
     Dates: start: 20200417
  4. CLOFAZIMINE [Suspect]
     Active Substance: CLOFAZIMINE
     Indication: TUBERCULOSIS
     Route: 065
     Dates: start: 20200417, end: 20210120

REACTIONS (3)
  - Angina pectoris [Recovered/Resolved]
  - Electrocardiogram QT prolonged [Unknown]
  - Skin discolouration [Unknown]

NARRATIVE: CASE EVENT DATE: 202101
